FAERS Safety Report 6745743-X (Version None)
Quarter: 2010Q2

REPORT INFORMATION
  Report Type: 
  Country: None (occurrence: None)
  Receive Date: 20100528
  Receipt Date: 20100517
  Transmission Date: 20101027
  Serious: Yes (Hospitalization, Other)
  Sender: FDA-Public Use
  Company Number: PHFR2010GB00663

PATIENT
  Sex: Male

DRUGS (3)
  1. CLOZARIL [Suspect]
     Indication: SCHIZOPHRENIA
     Dosage: UNK
     Dates: start: 19950525
  2. CLOZARIL [Suspect]
     Dosage: 300 MG, QD
     Dates: start: 20100521
  3. CLOZARIL [Suspect]
     Dosage: 950 MG, QD

REACTIONS (4)
  - DEPRESSED LEVEL OF CONSCIOUSNESS [None]
  - DIARRHOEA [None]
  - HYPOTONIA [None]
  - LOWER RESPIRATORY TRACT INFECTION [None]
